FAERS Safety Report 8780351 (Version 1)
Quarter: 2012Q4

REPORT INFORMATION
  Report Type: Spontaneous
  Country: US (occurrence: None)
  Receive Date: 20120905
  Receipt Date: 20120905
  Transmission Date: 20130627
  Serious: No
  Sender: FDA-Public Use
  Company Number: None

PATIENT
  Sex: Female
  Weight: 113.4 kg

DRUGS (3)
  1. GABAPENTIN [Suspect]
     Dates: start: 20120329, end: 20120430
  2. GABAPENTIN [Suspect]
  3. GABAPENTIN [Suspect]
     Dates: start: 20120430

REACTIONS (6)
  - Headache [None]
  - Dizziness [None]
  - Dyspepsia [None]
  - Muscular weakness [None]
  - Muscular weakness [None]
  - Pain in extremity [None]
